FAERS Safety Report 8539699-7 (Version None)
Quarter: 2012Q3

REPORT INFORMATION
  Report Type: 
  Country: None (occurrence: None)
  Receive Date: 20120726
  Receipt Date: 20120308
  Transmission Date: 20120928
  Serious: No
  Sender: FDA-Public Use
  Company Number: US-ASTRAZENECA-2010SE12803

PATIENT
  Age: 59 Year
  Sex: Male

DRUGS (4)
  1. SEROQUEL [Suspect]
     Route: 048
  2. SEROQUEL [Suspect]
     Route: 048
  3. SEROQUEL [Suspect]
     Dosage: 2-3 TABLETS AT BEDTIME
     Route: 048
  4. SEROQUEL [Suspect]
     Route: 048

REACTIONS (5)
  - MIGRAINE [None]
  - OFF LABEL USE [None]
  - SOMNOLENCE [None]
  - MALAISE [None]
  - FATIGUE [None]
